FAERS Safety Report 4776464-0 (Version None)
Quarter: 2005Q3

REPORT INFORMATION
  Report Type: 
  Country: None (occurrence: None)
  Receive Date: 20050922
  Receipt Date: 20050609
  Transmission Date: 20060218
  Serious: Yes (Hospitalization)
  Sender: FDA-Public Use
  Company Number: US-MERCK-0506USA01885

PATIENT
  Age: 55 Year
  Sex: Female
  Weight: 86 kg

DRUGS (15)
  1. VIOXX [Suspect]
     Indication: OSTEOARTHRITIS
     Route: 048
     Dates: start: 20030101, end: 20030501
  2. VIOXX [Suspect]
     Route: 048
     Dates: start: 20010108, end: 20030601
  3. VIOXX [Suspect]
     Indication: BACK PAIN
     Route: 048
     Dates: start: 20030101, end: 20030501
  4. VIOXX [Suspect]
     Route: 048
     Dates: start: 20010108, end: 20030601
  5. ATENOLOL [Concomitant]
     Indication: HEART RATE INCREASED
     Route: 065
     Dates: start: 19800101
  6. NORVASC [Concomitant]
     Indication: BLOOD PRESSURE
     Route: 065
     Dates: start: 20030101
  7. COLESTID [Concomitant]
     Indication: BLOOD CHOLESTEROL INCREASED
     Route: 065
     Dates: start: 20020101
  8. PROZAC [Concomitant]
     Indication: DEPRESSION
     Route: 065
     Dates: start: 20000101
  9. DEPAKOTE [Concomitant]
     Indication: MIGRAINE
     Route: 065
     Dates: start: 20020101
  10. PREVACID [Concomitant]
     Route: 065
  11. STALEVO 100 [Concomitant]
     Route: 065
  12. ZANAFLEX [Concomitant]
     Route: 065
  13. SYNTHROID [Concomitant]
     Route: 065
  14. PRINIVIL [Suspect]
     Indication: HEART RATE
     Route: 048
     Dates: end: 20030601
  15. PRINIVIL [Suspect]
     Route: 048
     Dates: end: 20030501

REACTIONS (35)
  - ADVERSE EVENT [None]
  - ANAEMIA [None]
  - ANGINA PECTORIS [None]
  - ARTHRALGIA [None]
  - BACK PAIN [None]
  - BREAST MICROCALCIFICATION [None]
  - CEREBELLAR INFARCTION [None]
  - CEREBROVASCULAR ACCIDENT [None]
  - CHEST PAIN [None]
  - CHEST WALL PAIN [None]
  - COLITIS [None]
  - DEEP VEIN THROMBOSIS [None]
  - DELIRIUM [None]
  - DEPRESSION [None]
  - DIZZINESS [None]
  - ERYTHEMA [None]
  - GASTRITIS [None]
  - HEADACHE [None]
  - HYPERTENSION [None]
  - HYPOTENSION [None]
  - HYPOTHYROIDISM [None]
  - INTERVERTEBRAL DISC DEGENERATION [None]
  - IRRITABLE BOWEL SYNDROME [None]
  - LOSS OF CONSCIOUSNESS [None]
  - LUMBAR RADICULOPATHY [None]
  - MIGRAINE [None]
  - MYOCARDIAL INFARCTION [None]
  - NAUSEA [None]
  - OEDEMA PERIPHERAL [None]
  - OESOPHAGITIS [None]
  - POST-TRAUMATIC STRESS DISORDER [None]
  - RASH [None]
  - RENAL FAILURE ACUTE [None]
  - SPINAL OSTEOARTHRITIS [None]
  - TREMOR [None]
